FAERS Safety Report 18767201 (Version 1)
Quarter: 2021Q1

REPORT INFORMATION
  Report Type: Spontaneous
  Country: US (occurrence: US)
  Receive Date: 20210121
  Receipt Date: 20210121
  Transmission Date: 20210419
  Serious: Yes (Life-Threatening, Disabling, Other)
  Sender: FDA-Public Use
  Company Number: None

PATIENT
  Age: 33 Year
  Sex: Male
  Weight: 69.75 kg

DRUGS (1)
  1. ARISTADA [Suspect]
     Active Substance: ARIPIPRAZOLE LAUROXIL
     Indication: MENTAL DISORDER
     Dates: start: 20190930, end: 20200601

REACTIONS (9)
  - Weight increased [None]
  - Hypoaesthesia [None]
  - Overdose [None]
  - Gastrointestinal disorder [None]
  - Injection site infection [None]
  - Anger [None]
  - Migraine [None]
  - Sedation [None]
  - Vomiting [None]

NARRATIVE: CASE EVENT DATE: 20190930
